FAERS Safety Report 11937545 (Version 5)
Quarter: 2016Q4

REPORT INFORMATION
  Report Type: Report from Study
  Country: CA (occurrence: CA)
  Receive Date: 20160122
  Receipt Date: 20161209
  Transmission Date: 20170206
  Serious: Yes (Other)
  Sender: FDA-Public Use
  Company Number: CA-ROCHE-1425602

PATIENT
  Age: 61 Year
  Sex: Female
  Weight: 79.45 kg

DRUGS (12)
  1. VAGIFEM [Concomitant]
     Active Substance: ESTRADIOL
  2. ACETAMINOPHEN. [Concomitant]
     Active Substance: ACETAMINOPHEN
     Indication: PREMEDICATION
     Route: 048
     Dates: start: 20140121
  3. PREDNISONE. [Concomitant]
     Active Substance: PREDNISONE
  4. RITUXAN [Suspect]
     Active Substance: RITUXIMAB
     Route: 042
     Dates: start: 20160502
  5. RITUXAN [Suspect]
     Active Substance: RITUXIMAB
     Indication: RHEUMATOID ARTHRITIS
     Dosage: DAY1,15. PREVIOUS RITUXIMAB INFUSION WAS ON 04/FEB/2014
     Route: 042
     Dates: start: 20140121, end: 20140829
  6. METHOTREXATE. [Concomitant]
     Active Substance: METHOTREXATE
  7. SYNTHROID [Concomitant]
     Active Substance: LEVOTHYROXINE SODIUM
  8. DIPHENHYDRAMINE HCL [Concomitant]
     Active Substance: DIPHENHYDRAMINE HYDROCHLORIDE
     Indication: PREMEDICATION
     Route: 048
     Dates: start: 20140121
  9. FOLIC ACID. [Concomitant]
     Active Substance: FOLIC ACID
  10. METHYLPREDNISOLONE. [Concomitant]
     Active Substance: METHYLPREDNISOLONE
     Indication: PREMEDICATION
     Route: 042
     Dates: start: 20140121
  11. VESICARE [Concomitant]
     Active Substance: SOLIFENACIN SUCCINATE
  12. ALENDRONATE [Concomitant]
     Active Substance: ALENDRONATE SODIUM

REACTIONS (10)
  - Hypotension [Unknown]
  - Nausea [Recovered/Resolved]
  - Blood pressure fluctuation [Not Recovered/Not Resolved]
  - Herpes virus infection [Not Recovered/Not Resolved]
  - Blood cholesterol increased [Unknown]
  - Pulmonary mass [Not Recovered/Not Resolved]
  - Arthralgia [Not Recovered/Not Resolved]
  - Headache [Recovered/Resolved]
  - Weight increased [Not Recovered/Not Resolved]
  - Fatigue [Not Recovered/Not Resolved]

NARRATIVE: CASE EVENT DATE: 20160502
